FAERS Safety Report 6170047-6 (Version None)
Quarter: 2009Q2

REPORT INFORMATION
  Report Type: 
  Country: None (occurrence: None)
  Receive Date: 20090424
  Receipt Date: 20081229
  Transmission Date: 20091009
  Serious: No
  Sender: FDA-Public Use
  Company Number: ALL1-2008-03636

PATIENT
  Age: 10 Year
  Sex: Male
  Weight: 30.8 kg

DRUGS (2)
  1. VYVANSE [Suspect]
     Indication: ATTENTION DEFICIT/HYPERACTIVITY DISORDER
     Dosage: 40 MG, 1X/DAY QD, ORAL
     Route: 048
     Dates: start: 20081121, end: 20081219
  2. SEROQUEL [Concomitant]

REACTIONS (2)
  - TIC [None]
  - TREMOR [None]
